FAERS Safety Report 5210419-7 (Version None)
Quarter: 2007Q1

REPORT INFORMATION
  Report Type: 
  Country: None (occurrence: None)
  Receive Date: 20070117
  Receipt Date: 20070105
  Transmission Date: 20070707
  Serious: Yes (Death, Hospitalization)
  Sender: FDA-Public Use
  Company Number: US-BRISTOL-MYERS SQUIBB COMPANY-13633755

PATIENT
  Age: 58 Year
  Sex: Female
  Weight: 63 kg

DRUGS (7)
  1. COUMADIN [Suspect]
     Dosage: DOSE: 5 MG, ALTERNATING WITH 7.5 MG.
  2. PLAVIX [Suspect]
     Dates: start: 20040101
  3. PLETAL [Concomitant]
  4. ASPIRIN [Concomitant]
     Dosage: BEGAN WITH PLAVIX.
  5. METOPROLOL SUCCINATE [Concomitant]
     Dosage: BEGAN ABOUT 1-YEAR AGO.
  6. ESTRATEST [Concomitant]
     Dates: start: 19980101
  7. PROZAC [Concomitant]
     Dates: start: 20040201

REACTIONS (3)
  - CIRCULATORY COLLAPSE [None]
  - DYSPNOEA [None]
  - LACTIC ACIDOSIS [None]
